FAERS Safety Report 10358285 (Version 2)
Quarter: 2014Q3

REPORT INFORMATION
  Report Type: Spontaneous
  Country: US (occurrence: US)
  Receive Date: 20140801
  Receipt Date: 20140905
  Transmission Date: 20150326
  Serious: Yes (Other)
  Sender: FDA-Public Use
  Company Number: US-JNJFOC-20140718419

PATIENT
  Age: 80 Year
  Sex: Male
  Weight: 88 kg

DRUGS (6)
  1. LUTEIN [Concomitant]
     Active Substance: LUTEIN
  2. INVOKANA [Suspect]
     Active Substance: CANAGLIFLOZIN
     Indication: TYPE 2 DIABETES MELLITUS
     Route: 048
     Dates: start: 20140618, end: 20140727
  3. ATACAND [Concomitant]
     Active Substance: CANDESARTAN CILEXETIL
     Indication: BLOOD PRESSURE
     Dates: start: 20130812
  4. FOLIC ACID. [Concomitant]
     Active Substance: FOLIC ACID
  5. LYCOPENE [Concomitant]
     Active Substance: LYCOPENE
  6. FOLBEE [Concomitant]

REACTIONS (1)
  - Haemochromatosis [Recovered/Resolved]

NARRATIVE: CASE EVENT DATE: 20140723
